FAERS Safety Report 20254884 (Version 2)
Quarter: 2022Q1

REPORT INFORMATION
  Report Type: Other
  Country: US (occurrence: None)
  Receive Date: 20211230
  Receipt Date: 20220117
  Transmission Date: 20220423
  Serious: Yes (Death)
  Sender: FDA-Public Use
  Company Number: US-ROCHE-2992977

PATIENT
  Age: 85 Year
  Sex: Female

DRUGS (2)
  1. LUCENTIS [Suspect]
     Active Substance: RANIBIZUMAB
     Indication: Neovascular age-related macular degeneration
     Dosage: NO?ANTICIPATED DATE OF FIRST TREATMENT : 05/MAR/2021?FREQUENCY : MONTHLY?THERAPY END DATE : 15/DEC/2
     Route: 050
     Dates: start: 2015
  2. LUCENTIS [Suspect]
     Active Substance: RANIBIZUMAB
     Indication: Choroidal neovascularisation

REACTIONS (1)
  - Death [Fatal]

NARRATIVE: CASE EVENT DATE: 20210312
